FAERS Safety Report 8648545 (Version 2)
Quarter: 2012Q4

REPORT INFORMATION
  Report Type: 
  Country: US (occurrence: US)
  Receive Date: 20120703
  Receipt Date: 20120904
  Transmission Date: 20130627
  Serious: Yes (Other)
  Sender: FDA-Public Use
  Company Number: US-GLAXOSMITHKLINE-A0978607A

PATIENT
  Age: 69 Year
  Sex: Male
  Weight: 80 kg

DRUGS (6)
  1. ARRANON [Suspect]
     Indication: PRODUCT USED FOR UNKNOWN INDICATION
     Dosage: 1500MGM2 Unknown
     Route: 042
     Dates: start: 20111207, end: 20120113
  2. ZYLOPRIM [Concomitant]
  3. XANAX [Concomitant]
  4. ALTACE [Concomitant]
  5. HYDRODIURIL [Concomitant]
  6. FINASTERIDE [Concomitant]

REACTIONS (2)
  - Neuropathy peripheral [Recovered/Resolved]
  - Disease progression [Recovered/Resolved]
